FAERS Safety Report 5522534-9 (Version None)
Quarter: 2007Q4

REPORT INFORMATION
  Report Type: 
  Country: None (occurrence: None)
  Receive Date: 20071120
  Receipt Date: 20071115
  Transmission Date: 20080405
  Serious: Yes (Other)
  Sender: FDA-Public Use
  Company Number: US-ELI_LILLY_AND_COMPANY-US200711003528

PATIENT
  Sex: Female

DRUGS (5)
  1. BYETTA [Suspect]
     Dosage: 5 UG, 2/D
     Route: 058
     Dates: start: 20070301, end: 20070301
  2. BYETTA [Suspect]
     Dosage: 10 UG, 2/D
     Route: 058
     Dates: start: 20070301
  3. GLIPIZIDE [Concomitant]
     Dosage: 10 MG, 2/D
     Route: 048
     Dates: start: 20070101
  4. ACTOS [Concomitant]
     Dosage: UNK, UNKNOWN
     Route: 048
     Dates: end: 20070301
  5. GLUCOVANCE [Concomitant]
     Dosage: UNK, UNKNOWN
     Route: 048
     Dates: end: 20070301

REACTIONS (3)
  - BREAST CANCER [None]
  - CERVICAL DYSPLASIA [None]
  - UTERINE DILATION AND CURETTAGE [None]
